FAERS Safety Report 20392742 (Version 2)
Quarter: 2022Q2

REPORT INFORMATION
  Report Type: Spontaneous
  Country: US (occurrence: None)
  Receive Date: 20220128
  Receipt Date: 20220630
  Transmission Date: 20220721
  Serious: Yes (Other)
  Sender: FDA-Public Use
  Company Number: 2022A038739

PATIENT
  Age: 45 Year
  Sex: Male
  Weight: 89.8 kg

DRUGS (80)
  1. NEXIUM [Suspect]
     Active Substance: ESOMEPRAZOLE MAGNESIUM
     Indication: Gastrooesophageal reflux disease
     Route: 048
     Dates: start: 2009
  2. NEXIUM [Suspect]
     Active Substance: ESOMEPRAZOLE MAGNESIUM
     Indication: Gastrooesophageal reflux disease
     Dosage: GENERIC
     Route: 065
     Dates: start: 2015
  3. NEXIUM [Suspect]
     Active Substance: ESOMEPRAZOLE MAGNESIUM
     Indication: Gastrooesophageal reflux disease
     Route: 048
     Dates: start: 2009, end: 2021
  4. NEXIUM 24HR [Suspect]
     Active Substance: ESOMEPRAZOLE MAGNESIUM
     Indication: Gastrooesophageal reflux disease
     Route: 048
     Dates: start: 2014, end: 2020
  5. NEXIUM 24HR [Suspect]
     Active Substance: ESOMEPRAZOLE MAGNESIUM
     Indication: Gastrooesophageal reflux disease
     Route: 048
     Dates: start: 2009, end: 2021
  6. OMEPRAZOLE [Suspect]
     Active Substance: OMEPRAZOLE
     Indication: Gastrooesophageal reflux disease
     Route: 048
     Dates: start: 2014, end: 2015
  7. PRILOSEC OTC [Suspect]
     Active Substance: OMEPRAZOLE MAGNESIUM
     Indication: Gastrooesophageal reflux disease
     Route: 048
     Dates: start: 2013, end: 2018
  8. PRILOSEC OTC [Suspect]
     Active Substance: OMEPRAZOLE MAGNESIUM
     Indication: Gastrooesophageal reflux disease
     Route: 048
     Dates: start: 2009, end: 2021
  9. DEXILANT [Suspect]
     Active Substance: DEXLANSOPRAZOLE
     Indication: Gastrooesophageal reflux disease
     Route: 065
     Dates: start: 2009, end: 2021
  10. DEXILANT [Suspect]
     Active Substance: DEXLANSOPRAZOLE
     Indication: Gastrooesophageal reflux disease
     Dosage: GENERIC
     Route: 065
     Dates: start: 2018, end: 2019
  11. LANSOPRAZOLE [Suspect]
     Active Substance: LANSOPRAZOLE
     Indication: Gastrooesophageal reflux disease
     Route: 065
     Dates: start: 2018, end: 2020
  12. PREVACID 24 HR [Suspect]
     Active Substance: LANSOPRAZOLE
     Indication: Gastrooesophageal reflux disease
     Route: 065
     Dates: start: 2013, end: 2018
  13. PREVACID 24 HR [Suspect]
     Active Substance: LANSOPRAZOLE
     Indication: Gastrooesophageal reflux disease
     Route: 065
     Dates: start: 2009, end: 2021
  14. TESTOSTERONE [Concomitant]
     Active Substance: TESTOSTERONE
  15. FOLIC ACID [Concomitant]
     Active Substance: FOLIC ACID
  16. AMITRIPTYLINE [Concomitant]
     Active Substance: AMITRIPTYLINE
  17. HYDROCODONE [Concomitant]
     Active Substance: HYDROCODONE
  18. ALPRAZOLAM [Concomitant]
     Active Substance: ALPRAZOLAM
  19. TIZANIDINE [Concomitant]
     Active Substance: TIZANIDINE
  20. HYDROXYZINE [Concomitant]
     Active Substance: HYDROXYZINE HYDROCHLORIDE
  21. VIRTUSSIN [Concomitant]
  22. BENZONATATE [Concomitant]
     Active Substance: BENZONATATE
  23. DICYCLOMINE [Concomitant]
     Active Substance: DICYCLOMINE HYDROCHLORIDE
  24. PREDNISONE [Concomitant]
     Active Substance: PREDNISONE
  25. MERCAPTOPURINE [Concomitant]
     Active Substance: MERCAPTOPURINE
  26. HYOSCYAMINE [Concomitant]
     Active Substance: HYOSCYAMINE
  27. CLINDAMYCIN [Concomitant]
     Active Substance: CLINDAMYCIN
  28. TAMOXIFEN [Concomitant]
     Active Substance: TAMOXIFEN
  29. ANASTROZOLE [Concomitant]
     Active Substance: ANASTROZOLE
  30. SILDENAFIL [Concomitant]
     Active Substance: SILDENAFIL
  31. PROMETHAZINE [Concomitant]
     Active Substance: PROMETHAZINE HYDROCHLORIDE
  32. CLONAZEPAM [Concomitant]
     Active Substance: CLONAZEPAM
  33. MUPIROCIN [Concomitant]
     Active Substance: MUPIROCIN
  34. ONDANSETRON [Concomitant]
     Active Substance: ONDANSETRON
  35. UBIDECARENONE/ACETYLCYSTEINE/ENCLOMIPHENE [Concomitant]
  36. AMPHETAMINE [Concomitant]
     Active Substance: AMPHETAMINE
  37. OSELTAMIVIR [Concomitant]
     Active Substance: OSELTAMIVIR
  38. TREMONT [Concomitant]
  39. LEVITRA [Concomitant]
     Active Substance: VARDENAFIL HYDROCHLORIDE
  40. CIALIS [Concomitant]
     Active Substance: TADALAFIL
  41. IPRATROPIUM [Concomitant]
     Active Substance: IPRATROPIUM
  42. AZELASTINE [Concomitant]
     Active Substance: AZELASTINE
  43. OXYCODONE [Concomitant]
     Active Substance: OXYCODONE
  44. ACETYLCYSTEINE/CLOMIFENE/ASTAXANTHIN [Concomitant]
  45. ANDROGEL [Concomitant]
     Active Substance: TESTOSTERONE
  46. ROZEREM [Concomitant]
     Active Substance: RAMELTEON
  47. FLUOXETINE [Concomitant]
     Active Substance: FLUOXETINE HYDROCHLORIDE
  48. AMBROXOL HYDROCHLORIDE/SULFAMETHOXAZOLE/TRIMETHOPRIM [Concomitant]
  49. AFLURIA NOS [Concomitant]
     Active Substance: INFLUENZA VIRUS VACCINE TRIVALENT TYPE A+B AFLURIA
  50. SUCRALFATE [Concomitant]
     Active Substance: SUCRALFATE
  51. HUMIRA [Concomitant]
     Active Substance: ADALIMUMAB
  52. GUAIFENESIN [Concomitant]
     Active Substance: GUAIFENESIN
  53. BENTYL [Concomitant]
     Active Substance: DICYCLOMINE HYDROCHLORIDE
  54. SINGULAIR [Concomitant]
     Active Substance: MONTELUKAST SODIUM
  55. AMBIEN [Concomitant]
     Active Substance: ZOLPIDEM TARTRATE
  56. METOPROLOL [Concomitant]
     Active Substance: METOPROLOL
  57. ZETIA [Concomitant]
     Active Substance: EZETIMIBE
  58. TRAMADOL [Concomitant]
     Active Substance: TRAMADOL
     Indication: Pain
  59. AMOXICILLIN [Concomitant]
     Active Substance: AMOXICILLIN
     Indication: Infection
  60. AZITHROMYCIN [Concomitant]
     Active Substance: AZITHROMYCIN
     Indication: Infection
  61. DOXYCYCLINE [Concomitant]
     Active Substance: DOXYCYCLINE
     Indication: Infection
  62. LEVOFLOXACIN [Concomitant]
     Active Substance: LEVOFLOXACIN
     Indication: Infection
  63. LEVAQUIN [Concomitant]
     Active Substance: LEVOFLOXACIN
     Indication: Infection
  64. MOXIFLOXACIN [Concomitant]
     Active Substance: MOXIFLOXACIN
     Indication: Infection
  65. LISINOPRIL [Concomitant]
     Active Substance: LISINOPRIL
     Indication: Blood pressure abnormal
  66. LOSARTAN [Concomitant]
     Active Substance: LOSARTAN
     Indication: Blood pressure abnormal
  67. ROSUVASTATIN [Concomitant]
     Active Substance: ROSUVASTATIN
     Indication: Blood cholesterol
  68. CRESTOR [Concomitant]
     Active Substance: ROSUVASTATIN CALCIUM
     Indication: Blood cholesterol
  69. AMITRIPTYLINE [Concomitant]
     Active Substance: AMITRIPTYLINE
     Indication: Depression
  70. IBUPROFEN [Concomitant]
     Active Substance: IBUPROFEN
     Indication: Pain
  71. ACETAMINOPHEN [Concomitant]
     Active Substance: ACETAMINOPHEN
     Indication: Pain
  72. FAMOTIDINE [Concomitant]
     Active Substance: FAMOTIDINE
  73. ZANTAC [Concomitant]
     Active Substance: RANITIDINE HYDROCHLORIDE
  74. PEPCID [Concomitant]
     Active Substance: FAMOTIDINE
  75. TAGAMET [Concomitant]
     Active Substance: CIMETIDINE
  76. TUMS [Concomitant]
     Active Substance: CALCIUM CARBONATE
  77. ROLAIDS [Concomitant]
     Active Substance: CALCIUM CARBONATE\MAGNESIUM HYDROXIDE
  78. MYLANTA [Concomitant]
     Active Substance: ALUMINUM HYDROXIDE\DIMETHICONE\MAGNESIUM HYDROXIDE
  79. ALKA-SELTZER [Concomitant]
     Active Substance: ANHYDROUS CITRIC ACID\ASPIRIN\SODIUM BICARBONATE
  80. PEPTO-BISMOL [Concomitant]
     Active Substance: BISMUTH SUBSALICYLATE

REACTIONS (2)
  - Chronic kidney disease [Not Recovered/Not Resolved]
  - Gastrooesophageal reflux disease [Not Recovered/Not Resolved]

NARRATIVE: CASE EVENT DATE: 20200101
